FAERS Safety Report 7648624-2 (Version None)
Quarter: 2011Q3

REPORT INFORMATION
  Report Type: 
  Country: None (occurrence: None)
  Receive Date: 20110801
  Receipt Date: 20110721
  Transmission Date: 20111222
  Serious: Yes (Hospitalization, Other)
  Sender: FDA-Public Use
  Company Number: PHFR2011GB01425

PATIENT
  Sex: Male

DRUGS (2)
  1. CLOZAPINE [Suspect]
     Indication: SCHIZOPHRENIA
     Route: 048
     Dates: start: 20001221, end: 20110215
  2. CLOZAPINE [Suspect]
     Route: 048
     Dates: end: 20110427

REACTIONS (6)
  - DELUSION [None]
  - HOSTILITY [None]
  - INCORRECT DOSE ADMINISTERED [None]
  - SCHIZOPHRENIA [None]
  - AGGRESSION [None]
  - HALLUCINATION, AUDITORY [None]
